FAERS Safety Report 8941222 (Version 1)
Quarter: 2012Q4

REPORT INFORMATION
  Report Type: 
  Country: US (occurrence: US)
  Receive Date: 20121203
  Receipt Date: 20121203
  Transmission Date: 20130627
  Serious: No
  Sender: FDA-Public Use
  Company Number: US-BAYER-2012-125304

PATIENT
  Age: 71 Year
  Sex: Female

DRUGS (1)
  1. MAGNEVIST [Suspect]
     Indication: MRI BRAIN
     Dosage: UNK
     Dates: start: 20121108, end: 20121108

REACTIONS (6)
  - Gallbladder disorder [None]
  - Nausea [None]
  - Fatigue [None]
  - Eructation [None]
  - Diarrhoea [None]
  - Pyrexia [None]
